FAERS Safety Report 16153631 (Version 2)
Quarter: 2019Q2

REPORT INFORMATION
  Report Type: Spontaneous
  Country: US (occurrence: US)
  Receive Date: 20190403
  Receipt Date: 20190412
  Transmission Date: 20190711
  Serious: Yes (Death)
  Sender: FDA-Public Use
  Company Number: US-BIOVITRUM-2019US0642

PATIENT
  Sex: Male
  Weight: 53.1 kg

DRUGS (6)
  1. GAMIFANT [Suspect]
     Active Substance: EMAPALUMAB-LZSG
     Indication: HAEMOPHAGOCYTIC LYMPHOHISTIOCYTOSIS
     Dosage: 50 MG ON 18-FEB-2019?150 MG ON 20-FEB-2019
     Route: 042
     Dates: start: 20190218, end: 20190220
  2. ETOPOSIDE. [Concomitant]
     Active Substance: ETOPOSIDE
     Dosage: ONE DOSE
     Dates: start: 20190129, end: 20190129
  3. ETOPOSIDE. [Concomitant]
     Active Substance: ETOPOSIDE
     Dosage: ONE DOSE
     Dates: start: 20190125, end: 20190125
  4. ETOPOSIDE. [Concomitant]
     Active Substance: ETOPOSIDE
     Dosage: ONE DOSE
     Dates: start: 20190223, end: 20190223
  5. DEXAMETHASONE. [Concomitant]
     Active Substance: DEXAMETHASONE
     Dates: start: 20190125
  6. DEXAMETHASONE. [Concomitant]
     Active Substance: DEXAMETHASONE
     Dates: start: 20190218

REACTIONS (1)
  - Respiratory distress [Fatal]
